FAERS Safety Report 7508206-X (Version None)
Quarter: 2011Q2

REPORT INFORMATION
  Report Type: 
  Country: None (occurrence: None)
  Receive Date: 20110519
  Receipt Date: 20110503
  Transmission Date: 20111010
  Serious: Yes (Life-Threatening, Other)
  Sender: FDA-Public Use
  Company Number: 20110212

PATIENT
  Age: 1 Day
  Sex: Female
  Weight: 1.14 kg

DRUGS (33)
  1. SOLU-CORTEF [Concomitant]
  2. CEFOTAXIME [Concomitant]
  3. CALCIUM GLUCONATE INJ [Suspect]
     Indication: PARENTERAL NUTRITION
     Dosage: 10.04 ML ONCE, INTRAVENOUS DRIP
     Route: 041
     Dates: start: 20110318, end: 20110319
  4. GLUCAGEN(GLUCAGON (HUMAN RECOMBINANT)) [Concomitant]
  5. HEPARIN [Concomitant]
  6. ERYTHROMYCIN [Concomitant]
  7. SODIUM CHLORIDE [Concomitant]
  8. MG SULFATE [Concomitant]
  9. SODIUM PHOSPHATES INJECTION [Concomitant]
  10. LORAZEPAM [Concomitant]
  11. CAFFEINE CITRATE [Concomitant]
  12. CONCENTRATED SODIUM CHLORIDE INJECTION [Concomitant]
  13. GENTAMICIN SULFATE [Concomitant]
  14. HEPARIN [Concomitant]
  15. STERILE WATER FOR INJECTION [Concomitant]
  16. MORPHINE SULFATE [Concomitant]
  17. 7% DEXTROSE/NHA/#3 WITH CALCIUM, TROPHAMIN, HEPARIN [Concomitant]
  18. BERACTANT [Concomitant]
  19. PEDIATRIC MULTIVITAMIN [Concomitant]
  20. VITAMIN K1(PHYTONADIONE) [Concomitant]
  21. INTRALIPID 10% [Concomitant]
  22. DEXTROSE [Concomitant]
  23. GLUCAGON (HUMAN RECOMBINATNT) [Concomitant]
  24. L-CYSTEINE [Concomitant]
  25. GENTAMICIN [Concomitant]
  26. HYDROCORTISONE [Concomitant]
  27. DOBAMINE [Concomitant]
  28. TRACE-4 MULTIPLE TRACE [Suspect]
     Indication: PARENTERAL NUTRITION
     Dosage: 0.34 ML ONCE, INTRAVENOUS DRIP
     Route: 041
     Dates: start: 20110318, end: 20110319
  29. D70% [Concomitant]
  30. SODIUM ACETATE [Concomitant]
  31. K ACETATE [Concomitant]
  32. AMPICILLIN SODIUM [Concomitant]
  33. TROPHAMINE [Concomitant]

REACTIONS (6)
  - HYPOGLYCAEMIA NEONATAL [None]
  - PRODUCT QUALITY ISSUE [None]
  - HYPOKALAEMIA [None]
  - TOXICITY TO VARIOUS AGENTS [None]
  - POLYURIA [None]
  - GLYCOSURIA [None]
